FAERS Safety Report 11865034 (Version 2)
Quarter: 2015Q4

REPORT INFORMATION
  Report Type: Spontaneous
  Country: US (occurrence: US)
  Receive Date: 20151223
  Receipt Date: 20151229
  Transmission Date: 20160305
  Serious: No
  Sender: FDA-Public Use
  Company Number: US-PFIZER INC-2015411224

PATIENT
  Age: 67 Year
  Sex: Male
  Weight: 78 kg

DRUGS (7)
  1. HYDROCHLOROTHIAZIDE. [Concomitant]
     Active Substance: HYDROCHLOROTHIAZIDE
     Indication: BLOOD PRESSURE MEASUREMENT
     Dosage: 25 MG, 1X/DAY
  2. DILTIAZEM [Concomitant]
     Active Substance: DILTIAZEM
     Indication: SUPRAVENTRICULAR EXTRASYSTOLES
     Dosage: 120 MG, 1X/DAY
  3. MULTIVITE [Concomitant]
     Active Substance: VITAMINS
     Indication: ROUTINE HEALTH MAINTENANCE
     Dosage: 1X/DAY
  4. MAGNESIUM [Concomitant]
     Active Substance: MAGNESIUM
     Indication: BLOOD MAGNESIUM DECREASED
     Dosage: 400 MG, 1X/DAY
  5. FRAGMIN [Suspect]
     Active Substance: DALTEPARIN SODIUM
     Dosage: 10000 IU, 1X/DAY
  6. FRAGMIN [Suspect]
     Active Substance: DALTEPARIN SODIUM
     Indication: PANCREATIC CARCINOMA
     Dosage: 15000 IU, 1X/DAY
     Route: 058
     Dates: start: 201508
  7. LISINOPRIL. [Concomitant]
     Active Substance: LISINOPRIL
     Indication: BLOOD PRESSURE MEASUREMENT
     Dosage: 10 MG, 2X/DAY

REACTIONS (2)
  - Haematuria [Recovering/Resolving]
  - Thrombophlebitis superficial [Unknown]

NARRATIVE: CASE EVENT DATE: 201510
